FAERS Safety Report 5645892-3 (Version None)
Quarter: 2008Q1

REPORT INFORMATION
  Report Type: 
  Country: None (occurrence: None)
  Receive Date: 20080229
  Receipt Date: 20080220
  Transmission Date: 20080703
  Serious: Yes (Hospitalization)
  Sender: FDA-Public Use
  Company Number: AT-ABBOTT-08P-009-0439151-00

PATIENT
  Sex: Male

DRUGS (12)
  1. DEPAKENE [Suspect]
     Indication: DRUG USE FOR UNKNOWN INDICATION
     Route: 048
     Dates: start: 20071201, end: 20071204
  2. DEPAKENE [Suspect]
     Route: 048
     Dates: start: 20071130, end: 20071130
  3. ARIPIPRAZOLE [Concomitant]
     Indication: DRUG USE FOR UNKNOWN INDICATION
     Route: 048
     Dates: start: 20071203, end: 20071210
  4. LORAZEPAM [Concomitant]
     Indication: DRUG USE FOR UNKNOWN INDICATION
     Route: 048
     Dates: start: 20071130, end: 20071130
  5. LORAZEPAM [Concomitant]
     Route: 048
     Dates: start: 20071201, end: 20071201
  6. LORAZEPAM [Concomitant]
     Route: 048
     Dates: start: 20071202, end: 20071202
  7. LORAZEPAM [Concomitant]
     Route: 048
     Dates: start: 20071203, end: 20071204
  8. LORAZEPAM [Concomitant]
     Route: 048
     Dates: start: 20071205, end: 20071207
  9. LORAZEPAM [Concomitant]
     Route: 048
     Dates: start: 20071208, end: 20071209
  10. LORAZEPAM [Concomitant]
     Route: 048
     Dates: start: 20071210, end: 20071211
  11. LORAZEPAM [Concomitant]
     Route: 048
     Dates: start: 20071212, end: 20071218
  12. RISPERIDONE [Concomitant]
     Indication: DRUG USE FOR UNKNOWN INDICATION
     Route: 030

REACTIONS (2)
  - BLOOD THROMBOPLASTIN DECREASED [None]
  - LIVER DISORDER [None]
